FAERS Safety Report 9028782 (Version 1)
Quarter: 2013Q1

REPORT INFORMATION
  Report Type: Spontaneous
  Country: US (occurrence: US)
  Receive Date: 20130124
  Receipt Date: 20130124
  Transmission Date: 20140127
  Serious: No
  Sender: FDA-Public Use
  Company Number: US-BAUSCH-2012BL000328

PATIENT
  Sex: Female

DRUGS (5)
  1. ALAWAY [Suspect]
     Indication: OCULAR HYPERAEMIA
     Route: 047
     Dates: start: 20111228, end: 20111228
  2. ALAWAY [Suspect]
     Indication: EYE PRURITUS
     Route: 047
     Dates: start: 20111231, end: 20111231
  3. ALAWAY [Suspect]
     Indication: LACRIMATION INCREASED
  4. ZYRTEC                                  /GFR/ [Concomitant]
  5. BENADRYL ^ACHE^ [Concomitant]

REACTIONS (4)
  - Drug hypersensitivity [Recovered/Resolved]
  - Eye irritation [Recovered/Resolved]
  - Rash [None]
  - Eyelid oedema [Recovered/Resolved]
